FAERS Safety Report 4936377-8 (Version None)
Quarter: 2006Q1

REPORT INFORMATION
  Report Type: 
  Country: None (occurrence: None)
  Receive Date: 20060302
  Receipt Date: 20060216
  Transmission Date: 20060701
  Serious: Yes (Death)
  Sender: FDA-Public Use
  Company Number: US200602003291

PATIENT
  Age: 1 Year
  Sex: Female

DRUGS (8)
  1. ZYPREXA [Suspect]
     Dosage: 20 MG
  2. RISPERDAL [Concomitant]
  3. HALDOL SOLUTAB [Concomitant]
  4. SEROQUEL [Concomitant]
  5. VALPROATE BISUMUTH (VALPROATE BISMUTH) [Concomitant]
  6. TRAZODONE (TRAZONE) [Concomitant]
  7. REMERON [Concomitant]
  8. ATIVAN [Concomitant]

REACTIONS (2)
  - DEMENTIA [None]
  - PNEUMONIA [None]
